FAERS Safety Report 8396712-8 (Version None)
Quarter: 2012Q2

REPORT INFORMATION
  Report Type: 
  Country: None (occurrence: None)
  Receive Date: 20120530
  Receipt Date: 20120529
  Transmission Date: 20120825
  Serious: Yes (Other)
  Sender: FDA-Public Use
  Company Number: US-PFIZER INC-2012129045

PATIENT
  Age: 72 Year
  Sex: Male

DRUGS (13)
  1. MEDROL [Suspect]
  2. PLAVIX [Concomitant]
     Dosage: UNK
  3. LISINOPRIL [Concomitant]
     Indication: HYPERTENSION
     Dosage: UNK
  4. DALIRESP [Suspect]
     Indication: CHRONIC OBSTRUCTIVE PULMONARY DISEASE
     Dosage: 500 UG, 1 IN 1 D
     Route: 048
     Dates: start: 20120418, end: 20120502
  5. CRESTOR [Concomitant]
     Dosage: UNK
  6. ALBUTEROL [Concomitant]
     Dosage: UNK
  7. CLONIDINE [Concomitant]
     Indication: HYPERTENSION
     Dosage: UNK
  8. FEXOFENADINE [Concomitant]
     Dosage: UNK
  9. ASPIRIN [Concomitant]
     Dosage: UNK
  10. RANITIDINE [Concomitant]
     Dosage: UNK
  11. AMLODIPINE [Concomitant]
     Indication: HYPERTENSION
     Dosage: UNK
  12. SYMBICORT [Concomitant]
     Dosage: UNK
  13. XOPENEX [Concomitant]
     Dosage: UNK

REACTIONS (2)
  - ASTHENIA [None]
  - MUSCLE FATIGUE [None]
